FAERS Safety Report 9026115 (Version 3)
Quarter: 2013Q2

REPORT INFORMATION
  Report Type: Spontaneous
  Country: SK (occurrence: SK)
  Receive Date: 20130122
  Receipt Date: 20130417
  Transmission Date: 20140414
  Serious: Yes (Death, Other)
  Sender: FDA-Public Use
  Company Number: SK-ROCHE-1180094

PATIENT
  Age: 62 Year
  Sex: Male

DRUGS (9)
  1. MABTHERA [Suspect]
     Indication: CHRONIC LYMPHOCYTIC LEUKAEMIA
     Route: 042
     Dates: start: 20120605, end: 20121024
  2. VINCRISTINE [Suspect]
     Indication: CHRONIC LYMPHOCYTIC LEUKAEMIA
     Route: 042
     Dates: start: 20060224, end: 20060530
  3. VINCRISTINE [Suspect]
     Route: 042
     Dates: start: 20120514, end: 20121005
  4. CYCLOPHOSPHAMIDE [Suspect]
     Indication: CHRONIC LYMPHOCYTIC LEUKAEMIA
     Dosage: 900 MG 1X
     Route: 042
     Dates: start: 20060224, end: 20060530
  5. CYCLOPHOSPHAMIDE [Suspect]
     Dosage: 1200 MG 4X
     Route: 042
     Dates: start: 20060224, end: 20060530
  6. CYCLOPHOSPHAMIDE [Suspect]
     Dosage: 1200 MG 4X
     Route: 042
     Dates: start: 20120514, end: 20121005
  7. CHLORAMBUCIL [Suspect]
     Indication: CHRONIC LYMPHOCYTIC LEUKAEMIA
     Dosage: 12MG/DAY
     Route: 048
     Dates: start: 20060620, end: 20120426
  8. PREDNISONE [Suspect]
     Indication: CHRONIC LYMPHOCYTIC LEUKAEMIA
     Dosage: 120 MG/DAY 5 CONSECUTIVE DAYS
     Route: 048
     Dates: start: 20060224, end: 20060530
  9. PREDNISONE [Suspect]
     Dosage: 100 MG/DAY 5 CONSECUTIVE DAYS
     Route: 048
     Dates: start: 20120514, end: 20121005

REACTIONS (4)
  - Progressive multifocal leukoencephalopathy [Fatal]
  - JC virus infection [Unknown]
  - Cerebrovascular accident [Recovered/Resolved with Sequelae]
  - Bronchitis [Recovered/Resolved]
